FAERS Safety Report 7319484-4 (Version None)
Quarter: 2011Q1

REPORT INFORMATION
  Report Type: 
  Country: None (occurrence: None)
  Receive Date: 20110228
  Receipt Date: 20100608
  Transmission Date: 20110831
  Serious: No
  Sender: FDA-Public Use
  Company Number: A0855014A

PATIENT
  Age: 29 Year
  Sex: Female

DRUGS (4)
  1. ATENOLOL [Concomitant]
  2. CYMBALTA [Concomitant]
  3. NEXIUM [Concomitant]
  4. LAMICTAL [Suspect]
     Dosage: 200MG TWICE PER DAY
     Route: 048

REACTIONS (2)
  - MIGRAINE WITH AURA [None]
  - PRODUCT QUALITY ISSUE [None]
